FAERS Safety Report 16396359 (Version 1)
Quarter: 2019Q2

REPORT INFORMATION
  Report Type: Spontaneous
  Country: CN (occurrence: CN)
  Receive Date: 20190605
  Receipt Date: 20190605
  Transmission Date: 20190711
  Serious: Yes (Other)
  Sender: FDA-Public Use
  Company Number: CN-FRESENIUS KABI-FK201906263

PATIENT
  Age: 53 Year
  Sex: Female

DRUGS (2)
  1. MORPHINE (MANUFACTURER UNKNOWN) [Suspect]
     Active Substance: MORPHINE
     Indication: PAIN
     Dosage: 1 MG/ML
     Route: 037
  2. ROPIVACAINE (MANUFACTURER UNKNOWN) [Suspect]
     Active Substance: ROPIVACAINE
     Indication: PAIN
     Dosage: 1 MG/ML
     Route: 037

REACTIONS (2)
  - Myoclonus [Recovered/Resolved]
  - Medication error [Recovered/Resolved]
